FAERS Safety Report 17882456 (Version 2)
Quarter: 2020Q3

REPORT INFORMATION
  Report Type: Report from Study
  Country: GB (occurrence: GB)
  Receive Date: 20200610
  Receipt Date: 20200824
  Transmission Date: 20201103
  Serious: Yes (Death, Hospitalization)
  Sender: FDA-Public Use
  Company Number: GB-JNJFOC-20200602964

PATIENT
  Age: 85 Year
  Sex: Male
  Weight: 95 kg

DRUGS (25)
  1. PARACETAMOL [Concomitant]
     Active Substance: ACETAMINOPHEN
     Dates: start: 20090624
  2. DILTIAZEM. [Concomitant]
     Active Substance: DILTIAZEM
     Dates: start: 20120411
  3. CLARITHROMYCIN. [Concomitant]
     Active Substance: CLARITHROMYCIN
     Dates: start: 20200103, end: 20200108
  4. POLYTAR                            /00325301/ [Concomitant]
     Dates: start: 20090624
  5. LISINOPRIL. [Concomitant]
     Active Substance: LISINOPRIL
     Dates: start: 20080711
  6. DOVOBET [Concomitant]
     Active Substance: BETAMETHASONE\CALCIPOTRIENE
     Dates: start: 20090624
  7. BECOTIDE [Concomitant]
     Active Substance: BECLOMETHASONE DIPROPIONATE
     Dates: start: 20101012
  8. TEICOPLANIN [Concomitant]
     Active Substance: TEICOPLANIN
     Dates: start: 20181031, end: 20181105
  9. TEICOPLANIN [Concomitant]
     Active Substance: TEICOPLANIN
     Dates: start: 20200107, end: 20200108
  10. APIXABAN [Concomitant]
     Active Substance: APIXABAN
     Dates: start: 20171116
  11. TAZOCIN [Concomitant]
     Active Substance: PIPERACILLIN SODIUM\TAZOBACTAM SODIUM
     Dates: start: 20181112, end: 20181117
  12. DOUBLEBASE [Concomitant]
     Active Substance: ISOPROPYL MYRISTATE\PARAFFIN
     Dates: start: 20040506
  13. COD LIVER OIL [Concomitant]
     Active Substance: COD LIVER OIL
     Dates: start: 20080711
  14. IBUPROFEN. [Concomitant]
     Active Substance: IBUPROFEN
     Dates: start: 20100715
  15. SERETIDE [Concomitant]
     Active Substance: FLUTICASONE PROPIONATE\SALMETEROL XINAFOATE
     Dates: start: 20101012
  16. AMIODARONE [Concomitant]
     Active Substance: AMIODARONE
     Dates: start: 20200103
  17. VENTOLIN [Concomitant]
     Active Substance: ALBUTEROL SULFATE
     Dates: start: 20101012
  18. FUROSEMIDE. [Concomitant]
     Active Substance: FUROSEMIDE
     Dates: start: 20140315
  19. STELARA [Suspect]
     Active Substance: USTEKINUMAB
     Indication: PSORIASIS
     Route: 058
     Dates: start: 20120915, end: 20191125
  20. WARFARIN [Concomitant]
     Active Substance: WARFARIN
     Dates: start: 20120411
  21. FOLIC ACID. [Concomitant]
     Active Substance: FOLIC ACID
     Dates: start: 20130815
  22. METHOTREXATE. [Concomitant]
     Active Substance: METHOTREXATE
     Dates: start: 20140515
  23. BUTRANS [Concomitant]
     Active Substance: BUPRENORPHINE
     Dates: start: 20160503
  24. CLARITHROMYCIN. [Concomitant]
     Active Substance: CLARITHROMYCIN
     Dates: start: 20181031, end: 20181105
  25. DIPROSALIC [Concomitant]
     Active Substance: BETAMETHASONE DIPROPIONATE
     Dates: start: 20100715

REACTIONS (3)
  - Infective exacerbation of chronic obstructive airways disease [Fatal]
  - Cardiac failure congestive [Fatal]
  - Acute kidney injury [Fatal]

NARRATIVE: CASE EVENT DATE: 202001
